FAERS Safety Report 6306596-7 (Version None)
Quarter: 2009Q3

REPORT INFORMATION
  Report Type: 
  Country: None (occurrence: None)
  Receive Date: 20090812
  Receipt Date: 20090805
  Transmission Date: 20100115
  Serious: Yes (Death)
  Sender: FDA-Public Use
  Company Number: A0801447A

PATIENT
  Sex: Female

DRUGS (5)
  1. SERETIDE [Suspect]
     Indication: DRUG USE FOR UNKNOWN INDICATION
     Route: 055
     Dates: end: 20090802
  2. KETOROLAC TROMETHAMINE [Concomitant]
  3. PLAVIX [Concomitant]
  4. ARCOXIA [Concomitant]
  5. UNKNOWN MEDICATION [Concomitant]

REACTIONS (1)
  - RESPIRATORY ARREST [None]
